FAERS Safety Report 16064930 (Version 1)
Quarter: 2019Q1

REPORT INFORMATION
  Report Type: Spontaneous
  Country: GB (occurrence: GB)
  Receive Date: 20190312
  Receipt Date: 20190312
  Transmission Date: 20190418
  Serious: Yes (Hospitalization)
  Sender: FDA-Public Use
  Company Number: GB-CONCORDIA PHARMACEUTICALS INC.-E2B_00018878

PATIENT
  Age: 47 Year
  Sex: Male

DRUGS (4)
  1. CICLOSPORIN [Suspect]
     Active Substance: CYCLOSPORINE
     Dosage: 600 MG/D ON ALTERNATE DAYS
     Route: 048
  2. PREDNISOLONE. [Suspect]
     Active Substance: PREDNISOLONE
     Dosage: 5 MG/DAY
     Route: 048
  3. CICLOSPORIN [Suspect]
     Active Substance: CYCLOSPORINE
     Indication: BONE MARROW TRANSPLANT
     Dosage: 3 MG/KG/DAY
  4. ACYCLOVIR. [Concomitant]
     Active Substance: ACYCLOVIR
     Dosage: 200 MG, BID

REACTIONS (6)
  - Herpes virus infection [Recovered/Resolved]
  - Pyrexia [Recovered/Resolved]
  - Urinary retention [Not Recovered/Not Resolved]
  - Myelitis [Recovering/Resolving]
  - Neurogenic bladder [Not Recovered/Not Resolved]
  - Paraparesis [Recovered/Resolved]
